FAERS Safety Report 6892300-0 (Version None)
Quarter: 2010Q3

REPORT INFORMATION
  Report Type: 
  Country: None (occurrence: None)
  Receive Date: 20100731
  Receipt Date: 20080403
  Transmission Date: 20110219
  Serious: No
  Sender: FDA-Public Use
  Company Number: US-PFIZER INC-2008030019

PATIENT
  Sex: Female
  Weight: 58.97 kg

DRUGS (5)
  1. NORVASC [Suspect]
     Route: 048
     Dates: start: 20070101
  2. LOVASTATIN [Concomitant]
  3. COZAAR [Concomitant]
  4. ATENOLOL [Concomitant]
  5. FUROSEMIDE [Concomitant]

REACTIONS (1)
  - JOINT SWELLING [None]
